FAERS Safety Report 6158223-X (Version None)
Quarter: 2009Q2

REPORT INFORMATION
  Report Type: 
  Country: None (occurrence: None)
  Receive Date: 20090417
  Receipt Date: 20080529
  Transmission Date: 20091009
  Serious: No
  Sender: FDA-Public Use
  Company Number: US-AMGEN-US273739

PATIENT
  Sex: Female

DRUGS (13)
  1. SENSIPAR [Suspect]
     Indication: HYPERPARATHYROIDISM SECONDARY
     Route: 048
     Dates: start: 20070123, end: 20080414
  2. FUROSEMIDE [Concomitant]
     Route: 048
  3. ALLOPURINOL [Concomitant]
     Route: 048
  4. VYTORIN [Concomitant]
     Route: 048
  5. HYDRALAZINE HCL [Concomitant]
     Route: 048
  6. VERAPAMIL [Concomitant]
     Route: 048
  7. AMITRIPTYLINE HCL [Concomitant]
     Route: 048
  8. COLCHICINE [Concomitant]
     Route: 065
  9. LISINOPRIL [Concomitant]
     Route: 048
  10. INSULIN [Concomitant]
     Route: 065
  11. LANTUS [Concomitant]
     Route: 058
     Dates: end: 20080308
  12. INSULATARD NPH HUMAN [Concomitant]
     Route: 058
     Dates: start: 20080309
  13. EPOGEN [Concomitant]
     Route: 065

REACTIONS (6)
  - DIARRHOEA [None]
  - FATIGUE [None]
  - FEELING COLD [None]
  - NAUSEA [None]
  - SYNCOPE [None]
  - VOMITING PROJECTILE [None]
